FAERS Safety Report 19810345 (Version 2)
Quarter: 2021Q3

REPORT INFORMATION
  Report Type: Spontaneous
  Country: US (occurrence: US)
  Receive Date: 20210909
  Receipt Date: 20210930
  Transmission Date: 20211014
  Serious: No
  Sender: FDA-Public Use
  Company Number: US-ASTRAZENECA-2021A679361

PATIENT
  Age: 860 Month
  Sex: Male
  Weight: 89.8 kg

DRUGS (1)
  1. FASENRA [Suspect]
     Active Substance: BENRALIZUMAB
     Indication: ASTHMA
     Dosage: 30.0MG UNKNOWN
     Route: 058
     Dates: start: 20210416

REACTIONS (5)
  - Diarrhoea [Recovered/Resolved]
  - Feeling abnormal [Unknown]
  - Musculoskeletal discomfort [Unknown]
  - Urticaria [Unknown]
  - Rash pruritic [Recovering/Resolving]

NARRATIVE: CASE EVENT DATE: 202106
